FAERS Safety Report 17216522 (Version 1)
Quarter: 2019Q4

REPORT INFORMATION
  Report Type: Spontaneous
  Country: US (occurrence: US)
  Receive Date: 20191230
  Receipt Date: 20191230
  Transmission Date: 20200122
  Serious: No
  Sender: FDA-Public Use
  Company Number: US-ABBVIE-19K-163-3211379-00

PATIENT

DRUGS (1)
  1. ORILISSA [Suspect]
     Active Substance: ELAGOLIX SODIUM
     Indication: ENDOMETRIOSIS
     Route: 048

REACTIONS (8)
  - Hypophagia [Unknown]
  - Vomiting [Unknown]
  - Abdominal pain [Unknown]
  - Back pain [Unknown]
  - Dyspnoea [Unknown]
  - Abdominal distension [Unknown]
  - Gait disturbance [Unknown]
  - Hepatomegaly [Unknown]
